FAERS Safety Report 6520887-6 (Version None)
Quarter: 2009Q4

REPORT INFORMATION
  Report Type: 
  Country: None (occurrence: None)
  Receive Date: 20091229
  Receipt Date: 20091221
  Transmission Date: 20100525
  Serious: Yes (Life-Threatening, Other)
  Sender: FDA-Public Use
  Company Number: JP-JNJFOC-20091207043

PATIENT
  Sex: Male

DRUGS (15)
  1. CRAVIT [Suspect]
     Indication: EXTRADURAL ABSCESS
     Route: 065
  2. LOXONIN [Suspect]
     Indication: PAIN
     Route: 048
     Dates: start: 20091021, end: 20091128
  3. CEFAMEZIN [Suspect]
     Indication: ABSCESS
     Route: 065
     Dates: start: 20091106, end: 20091129
  4. OMEPRAL [Suspect]
     Indication: PROPHYLAXIS AGAINST GASTROINTESTINAL ULCER
     Route: 048
     Dates: start: 20091208, end: 20091214
  5. TARGOCID [Suspect]
     Indication: ABSCESS
     Route: 065
     Dates: start: 20091201
  6. FAMOTIDINE [Suspect]
     Indication: PROPHYLAXIS AGAINST GASTROINTESTINAL ULCER
     Route: 048
     Dates: start: 20091107, end: 20091130
  7. ACTOS [Concomitant]
     Indication: DIABETES MELLITUS
     Route: 048
  8. ATELEC [Concomitant]
     Indication: HYPERTENSION
     Route: 048
  9. DIOVAN [Concomitant]
     Indication: HYPERTENSION
     Route: 048
  10. PRORENAL [Concomitant]
     Indication: HYPOAESTHESIA
     Route: 048
  11. MYONAL [Concomitant]
     Indication: MUSCLE TIGHTNESS
     Route: 048
  12. MIYA BM [Concomitant]
     Indication: DIARRHOEA
     Route: 048
  13. AZULENE SULFONATE SODIUM AND L-GLUTAMINE [Concomitant]
     Indication: GASTRITIS PROPHYLAXIS
     Route: 048
  14. HUMALOG [Concomitant]
     Indication: DIABETES MELLITUS
     Route: 058
  15. LANTUS [Concomitant]
     Indication: DIABETES MELLITUS
     Route: 058

REACTIONS (5)
  - DISSEMINATED INTRAVASCULAR COAGULATION [None]
  - HEPATITIS ACUTE [None]
  - INTERNATIONAL NORMALISED RATIO INCREASED [None]
  - PANCYTOPENIA [None]
  - PYREXIA [None]
